FAERS Safety Report 5670826-5 (Version None)
Quarter: 2008Q1

REPORT INFORMATION
  Report Type: 
  Country: None (occurrence: None)
  Receive Date: 20080318
  Receipt Date: 20080311
  Transmission Date: 20080703
  Serious: Yes (Other)
  Sender: FDA-Public Use
  Company Number: US-BAYER-200816613NA

PATIENT
  Age: 18 Year
  Sex: Female
  Weight: 53 kg

DRUGS (2)
  1. MAGNEVIST [Suspect]
     Indication: NUCLEAR MAGNETIC RESONANCE IMAGING
     Route: 042
     Dates: start: 20080306, end: 20080306
  2. LOESTRIN 1.5/30 [Concomitant]

REACTIONS (4)
  - CHEST PAIN [None]
  - FEELING HOT [None]
  - LOCAL SWELLING [None]
  - RASH [None]
